FAERS Safety Report 16513828 (Version 1)
Quarter: 2019Q3

REPORT INFORMATION
  Report Type: Spontaneous
  Country: US (occurrence: US)
  Receive Date: 20190701
  Receipt Date: 20190701
  Transmission Date: 20191004
  Serious: No
  Sender: FDA-Public Use
  Company Number: US-ROCHE-2213177

PATIENT
  Sex: Female

DRUGS (3)
  1. CLONAZEPAM. [Suspect]
     Active Substance: CLONAZEPAM
     Indication: ORTHOSTATIC TREMOR
     Route: 065
  2. VALPROATE [Suspect]
     Active Substance: VALPROIC ACID
     Indication: ORTHOSTATIC TREMOR
     Route: 065
  3. PRIMIDONE. [Suspect]
     Active Substance: PRIMIDONE
     Indication: ORTHOSTATIC TREMOR
     Route: 065

REACTIONS (2)
  - Treatment failure [Unknown]
  - No adverse event [Unknown]
